FAERS Safety Report 6401832-0 (Version None)
Quarter: 2009Q4

REPORT INFORMATION
  Report Type: 
  Country: None (occurrence: None)
  Receive Date: 20091013
  Receipt Date: 20091013
  Transmission Date: 20100525
  Serious: No
  Sender: FDA-Public Use
  Company Number: None

PATIENT

DRUGS (1)
  1. GENTAMICIN [Suspect]
     Route: 047

REACTIONS (2)
  - CONJUNCTIVITIS [None]
  - DERMATITIS [None]
